FAERS Safety Report 19386928 (Version 3)
Quarter: 2021Q4

REPORT INFORMATION
  Report Type: Spontaneous
  Country: US (occurrence: US)
  Receive Date: 20210607
  Receipt Date: 20211018
  Transmission Date: 20220304
  Serious: Yes (Other)
  Sender: FDA-Public Use
  Company Number: US-BAYER-2021-151799

PATIENT
  Age: 16 Year
  Sex: Female

DRUGS (3)
  1. KYLEENA [Suspect]
     Active Substance: LEVONORGESTREL
     Indication: Contraception
     Dosage: 17.5 ?G, CONT
     Route: 015
     Dates: start: 20200923, end: 20210601
  2. DIFLUCAN [Concomitant]
     Active Substance: FLUCONAZOLE
     Indication: Vulvovaginal candidiasis
     Dosage: 150 MG
     Dates: start: 20211006
  3. SOLOSEC [Concomitant]
     Active Substance: SECNIDAZOLE
     Dosage: UNK
     Dates: start: 20211006

REACTIONS (8)
  - Device dislocation [Recovered/Resolved]
  - Urinary tract infection [Recovering/Resolving]
  - Pelvic pain [Recovered/Resolved]
  - Vaginal discharge [None]
  - Vulvovaginal candidiasis [None]
  - Procedural pain [None]
  - Post procedural discomfort [None]
  - Bacterial vaginosis [None]

NARRATIVE: CASE EVENT DATE: 20210101
